FAERS Safety Report 20559437 (Version 4)
Quarter: 2023Q1

REPORT INFORMATION
  Report Type: Spontaneous
  Country: CA (occurrence: CA)
  Receive Date: 20220307
  Receipt Date: 20230323
  Transmission Date: 20230417
  Serious: Yes (Other)
  Sender: FDA-Public Use
  Company Number: CA-PFIZER INC-202200321995

PATIENT
  Age: 60 Year
  Sex: Male

DRUGS (15)
  1. SULFASALAZINE [Suspect]
     Active Substance: SULFASALAZINE
     Indication: Arthralgia
     Dosage: 1 G, 2X/DAY
     Route: 048
     Dates: start: 2016
  2. SULFASALAZINE [Suspect]
     Active Substance: SULFASALAZINE
     Indication: Pain in extremity
     Dosage: 1.5 G, 2X/DAY
     Route: 048
     Dates: start: 2016
  3. SULFASALAZINE [Suspect]
     Active Substance: SULFASALAZINE
     Dosage: 3 G, DAILY. (3 PILL 500MG IN THE MORNING AND 3 PILLS IN THE EVENING).
     Route: 048
  4. SULFASALAZINE [Suspect]
     Active Substance: SULFASALAZINE
     Dosage: 1500 MG, 2X/DAY
     Route: 048
  5. DOCUSATE [Concomitant]
     Active Substance: DOCUSATE
     Dosage: UNK
  6. LEVOTHYROXINE [Concomitant]
     Active Substance: LEVOTHYROXINE
     Dosage: UNK
  7. LORAZEPAM [Concomitant]
     Active Substance: LORAZEPAM
     Dosage: 1 MG
  8. PLAQUENIL [Concomitant]
     Active Substance: HYDROXYCHLOROQUINE SULFATE
     Dosage: 400 MG, 1X/DAY
     Dates: start: 202206
  9. PREDNISONE [Concomitant]
     Active Substance: PREDNISONE
     Dosage: 15 MG, DAILY, FOR 2 WEEKS, THEN 12.5MG FOR 2 WEEKS, THEN 10MG
  10. PREDNISONE [Concomitant]
     Active Substance: PREDNISONE
     Dosage: 1 DF. DOSAGE INFO: UNKNOWN. TAPERING NOW
  11. PREDNISONE [Concomitant]
     Active Substance: PREDNISONE
     Dosage: 1 MG, 1X/DAY
     Route: 048
     Dates: start: 20220519
  12. TELMISARTAN [Concomitant]
     Active Substance: TELMISARTAN
     Dosage: UNK
  13. TADALAFIL [Concomitant]
     Active Substance: TADALAFIL
     Dosage: 20 MG
  14. VARENICLINE [Concomitant]
     Active Substance: VARENICLINE
     Dosage: UNK
  15. XELJANZ [Concomitant]
     Active Substance: TOFACITINIB CITRATE
     Indication: Rheumatoid arthritis
     Dosage: 5 MG, 2X/DAY
     Route: 048

REACTIONS (8)
  - C-reactive protein increased [Unknown]
  - Lymphoma [Unknown]
  - Arthralgia [Unknown]
  - Pain in extremity [Unknown]
  - Tendonitis [Unknown]
  - Synovitis [Unknown]
  - Joint swelling [Unknown]
  - Abdominal pain upper [Unknown]

NARRATIVE: CASE EVENT DATE: 20210101
